FAERS Safety Report 7482290-4 (Version None)
Quarter: 2011Q2

REPORT INFORMATION
  Report Type: 
  Country: None (occurrence: None)
  Receive Date: 20110516
  Receipt Date: 20110510
  Transmission Date: 20111010
  Serious: No
  Sender: FDA-Public Use
  Company Number: US-PFIZER INC-2011100431

PATIENT
  Sex: Female
  Weight: 104 kg

DRUGS (4)
  1. PREMPRO [Suspect]
     Indication: MENOPAUSE
     Dosage: 0.625/2.5 MG, DAILY
     Route: 048
  2. PREMPRO [Suspect]
     Indication: MENORRHAGIA
  3. PREMPRO [Suspect]
     Indication: HOT FLUSH
  4. SYNTHROID [Concomitant]
     Dosage: UNK

REACTIONS (1)
  - METRORRHAGIA [None]
